FAERS Safety Report 9182427 (Version 1)
Quarter: 2012Q4

REPORT INFORMATION
  Report Type: 
  Country: US (occurrence: US)
  Receive Date: 20121030
  Receipt Date: 20121030
  Transmission Date: 20130627
  Serious: No
  Sender: FDA-Public Use
  Company Number: US-GLAXOSMITHKLINE-A0965710A

PATIENT
  Age: 57 Year
  Sex: Female

DRUGS (6)
  1. IMITREX [Suspect]
     Indication: MIGRAINE
     Dosage: 1APP As required
     Route: 045
     Dates: start: 20120211
  2. NEURONTIN [Concomitant]
  3. ADVAIR [Concomitant]
  4. IBUPROFEN [Concomitant]
  5. EXCEDRIN [Concomitant]
  6. HYDROCODONE [Concomitant]

REACTIONS (2)
  - Drug ineffective [Recovered/Resolved]
  - Product quality issue [Unknown]
